FAERS Safety Report 4700652-2 (Version None)
Quarter: 2005Q2

REPORT INFORMATION
  Report Type: 
  Country: None (occurrence: None)
  Receive Date: 20050627
  Receipt Date: 20050613
  Transmission Date: 20051028
  Serious: Yes (Hospitalization)
  Sender: FDA-Public Use
  Company Number: 2005081939

PATIENT
  Age: 76 Year
  Sex: Female
  Weight: 80 kg

DRUGS (5)
  1. LYRICA [Suspect]
     Indication: POST HERPETIC NEURALGIA
     Dosage: 600 MG; ORAL
     Route: 048
     Dates: start: 20050501, end: 20050529
  2. TRAMADOL HCL [Concomitant]
  3. LASIX [Concomitant]
  4. LEVOTHYROXINE SODIUM [Concomitant]
  5. MAGNESIUM [Concomitant]

REACTIONS (16)
  - BRADYCARDIA [None]
  - CARDIO-RESPIRATORY ARREST [None]
  - CIRCULATORY COLLAPSE [None]
  - DRUG TOXICITY [None]
  - GAIT DISTURBANCE [None]
  - HAEMATOCRIT DECREASED [None]
  - HAEMOGLOBIN DECREASED [None]
  - HYPOTENSION [None]
  - MYOCARDIAL INFARCTION [None]
  - NAUSEA [None]
  - PULSE ABSENT [None]
  - RED BLOOD CELL COUNT DECREASED [None]
  - RESPIRATORY DEPRESSION [None]
  - SPEECH DISORDER [None]
  - TACHYCARDIA [None]
  - VOMITING [None]
